FAERS Safety Report 7808785-9 (Version None)
Quarter: 2011Q4

REPORT INFORMATION
  Report Type: 
  Country: None (occurrence: None)
  Receive Date: 20111012
  Receipt Date: 20110930
  Transmission Date: 20120403
  Serious: Yes (Other)
  Sender: FDA-Public Use
  Company Number: PHEH2011US05740

PATIENT
  Age: 91 Year
  Sex: Female

DRUGS (1)
  1. GLEEVEC [Suspect]
     Dosage: UNK

REACTIONS (4)
  - BLINDNESS [None]
  - PAIN [None]
  - DIARRHOEA [None]
  - FATIGUE [None]
